FAERS Safety Report 13001593 (Version 1)
Quarter: 2016Q4

REPORT INFORMATION
  Report Type: Spontaneous
  Country: US (occurrence: US)
  Receive Date: 20161205
  Receipt Date: 20161205
  Transmission Date: 20170207
  Serious: No
  Sender: FDA-Public Use
  Company Number: None

PATIENT
  Age: 38 Year
  Sex: Male

DRUGS (5)
  1. VIVITROL [Suspect]
     Active Substance: NALTREXONE
     Indication: DRUG DEPENDENCE
     Dosage: 380MG ADV - ONE VIAL Q 28 DAYS
     Route: 030
     Dates: start: 20161102
  2. DOXEPIN HCL [Concomitant]
     Active Substance: DOXEPIN HYDROCHLORIDE
  3. MIRTAZAPINE. [Concomitant]
     Active Substance: MIRTAZAPINE
  4. NALTREXONE [Concomitant]
     Active Substance: NALTREXONE
  5. CEPHALEXIN. [Concomitant]
     Active Substance: CEPHALEXIN

REACTIONS (1)
  - Adverse reaction [None]

NARRATIVE: CASE EVENT DATE: 201611
